FAERS Safety Report 13051776 (Version 1)
Quarter: 2016Q4

REPORT INFORMATION
  Report Type: Spontaneous
  Country: DK (occurrence: DK)
  Receive Date: 20161221
  Receipt Date: 20161221
  Transmission Date: 20170207
  Serious: Yes (Hospitalization)
  Sender: FDA-Public Use
  Company Number: PHHY2016DK171435

PATIENT
  Age: 37 Year
  Sex: Female
  Weight: 74 kg

DRUGS (1)
  1. OXAPAX [Suspect]
     Active Substance: OXAZEPAM
     Indication: SUICIDE ATTEMPT
     Route: 048

REACTIONS (2)
  - Suicide attempt [Recovered/Resolved]
  - Intentional overdose [Recovered/Resolved]

NARRATIVE: CASE EVENT DATE: 20150429
